FAERS Safety Report 4887230-X (Version None)
Quarter: 2006Q1

REPORT INFORMATION
  Report Type: 
  Country: None (occurrence: None)
  Receive Date: 20060120
  Receipt Date: 20060113
  Transmission Date: 20060701
  Serious: Yes (Other)
  Sender: FDA-Public Use
  Company Number: JP-SANOFI-SYNTHELABO-F01200600094

PATIENT
  Sex: Male

DRUGS (3)
  1. OXALIPLATIN [Suspect]
     Indication: COLON CANCER
     Dosage: 96MG/BODY IN INFUSION ON DAY 1
     Route: 042
     Dates: start: 20051213, end: 20051213
  2. FLUOROURACIL [Suspect]
     Dosage: 400MG/M2 IN BOLUS ON DAY 1 THEN 2400MG/M2 AS CONTINUOUS INFUSION ON DAY 1-2
     Route: 042
     Dates: start: 20051213, end: 20051214
  3. CALCIUM LEVOFOLINATE [Suspect]
     Dosage: 200MG/M2 IN INFUSION ON DAY 1
     Route: 042
     Dates: start: 20051213, end: 20051214

REACTIONS (1)
  - CHOLECYSTITIS INFECTIVE [None]
